FAERS Safety Report 6677789-4 (Version None)
Quarter: 2010Q2

REPORT INFORMATION
  Report Type: 
  Country: None (occurrence: None)
  Receive Date: 20100412
  Receipt Date: 20100407
  Transmission Date: 20101027
  Serious: Yes (Hospitalization)
  Sender: FDA-Public Use
  Company Number: US-ASTRAZENECA-2010SE15334

PATIENT
  Age: 67 Year
  Sex: Female
  Weight: 61.2 kg

DRUGS (8)
  1. CRESTOR [Suspect]
     Indication: BLOOD CHOLESTEROL DECREASED
     Route: 048
     Dates: start: 19960101
  2. OMEPRAZOLE [Concomitant]
  3. METOPROLOL SUCCINATE [Concomitant]
  4. ASPIRIN [Concomitant]
     Dosage: DAILY
  5. AVANDIA [Concomitant]
     Dates: end: 20100407
  6. AVAPRO [Concomitant]
  7. INSULIN [Concomitant]
  8. MULTI-VITAMIN [Concomitant]

REACTIONS (5)
  - ANAEMIA [None]
  - ASCITES [None]
  - ASTHENIA [None]
  - HEPATITIS [None]
  - HEPATOMEGALY [None]
